FAERS Safety Report 8485384 (Version 7)
Quarter: 2013Q1

REPORT INFORMATION
  Report Type: Spontaneous
  Country: US (occurrence: US)
  Receive Date: 20120330
  Receipt Date: 20130103
  Transmission Date: 20140127
  Serious: Yes (Hospitalization, Disabling, Other)
  Sender: FDA-Public Use
  Company Number: US-009507513-1203USA03316

PATIENT
  Sex: 0

DRUGS (9)
  1. FOSAMAX [Suspect]
     Indication: OSTEOPOROSIS
     Dosage: 70 MG, UNK
     Route: 048
     Dates: start: 2000, end: 200807
  2. FOSAMAX [Suspect]
     Indication: OSTEOPENIA
  3. FOSAMAX [Suspect]
     Indication: OSTEOPOROSIS
     Dosage: 70 MG, UNK
     Route: 048
     Dates: start: 200807, end: 201003
  4. FOSAMAX [Suspect]
     Indication: OSTEOPENIA
  5. ALENDRONATE SODIUM [Suspect]
     Indication: OSTEOPOROSIS
     Dosage: 70 MG, UNK
     Route: 048
     Dates: start: 20080716
  6. ALENDRONATE SODIUM [Suspect]
     Indication: OSTEOPENIA
  7. BONIVA [Concomitant]
     Indication: OSTEOPOROSIS
     Dosage: UNK MG, UNK
     Route: 048
     Dates: start: 201003, end: 201101
  8. BONIVA [Concomitant]
     Indication: OSTEOPENIA
  9. PREMARIN [Concomitant]
     Indication: HORMONE REPLACEMENT THERAPY
     Dates: start: 1998, end: 2010

REACTIONS (60)
  - Femur fracture [Not Recovered/Not Resolved]
  - Low turnover osteopathy [Not Recovered/Not Resolved]
  - Stress fracture [Not Recovered/Not Resolved]
  - Uterine disorder [Unknown]
  - Spinal compression fracture [Unknown]
  - Deafness [Unknown]
  - Fall [Unknown]
  - Osteoporosis [Not Recovered/Not Resolved]
  - Arthralgia [Unknown]
  - Compression fracture [Unknown]
  - Spinal compression fracture [Unknown]
  - Vitamin D deficiency [Unknown]
  - Tooth extraction [Unknown]
  - Hypertension [Unknown]
  - Fracture delayed union [Unknown]
  - Mass [Unknown]
  - Intervertebral disc degeneration [Unknown]
  - Anal fistula [Unknown]
  - Complex regional pain syndrome [Unknown]
  - Bladder dysfunction [Unknown]
  - Tendon disorder [Unknown]
  - Anxiety [Unknown]
  - Hypokalaemia [Unknown]
  - Stress urinary incontinence [Unknown]
  - Cystocele [Unknown]
  - Emphysema [Unknown]
  - Pneumothorax [Unknown]
  - Atelectasis [Unknown]
  - Pain [Unknown]
  - Chest pain [Unknown]
  - Leukocytosis [Unknown]
  - Supraventricular extrasystoles [Unknown]
  - Diverticulum [Unknown]
  - Neuropathy peripheral [Unknown]
  - Depression [Unknown]
  - Dyspnoea [Unknown]
  - Bronchitis [Unknown]
  - Ulcer [Unknown]
  - Irritable bowel syndrome [Unknown]
  - Cough [Unknown]
  - Skin lesion [Unknown]
  - Upper respiratory tract infection [Unknown]
  - Radiculopathy [Unknown]
  - Decreased appetite [Unknown]
  - Insomnia [Unknown]
  - Abdominal pain [Unknown]
  - Back pain [Unknown]
  - Musculoskeletal chest pain [Unknown]
  - Pain in extremity [Unknown]
  - Constipation [Unknown]
  - Diarrhoea [Unknown]
  - Back pain [Unknown]
  - Dysphagia [Unknown]
  - Arthralgia [Unknown]
  - Pain in extremity [Unknown]
  - Oedema peripheral [Unknown]
  - Gastrooesophageal reflux disease [Unknown]
  - Nausea [Unknown]
  - Vertebroplasty [Unknown]
  - Intervertebral disc space narrowing [Unknown]
